FAERS Safety Report 5476561-0 (Version None)
Quarter: 2007Q3

REPORT INFORMATION
  Report Type: 
  Country: None (occurrence: None)
  Receive Date: 20070927
  Receipt Date: 20060915
  Transmission Date: 20080115
  Serious: Yes (Other)
  Sender: FDA-Public Use
  Company Number: FABR-11651

PATIENT
  Age: 51 Year
  Sex: Male
  Weight: 54 kg

DRUGS (6)
  1. FABRAZYME [Suspect]
     Indication: FABRY'S DISEASE
     Dosage: 55 MG Q2WKS IV
     Route: 042
     Dates: start: 20060119
  2. MOTRIN [Concomitant]
  3. ASPIRIN [Concomitant]
  4. ALBUTEROL [Concomitant]
  5. SINGULAIR [Concomitant]
  6. ATORVASTATIN CALCIUM [Concomitant]

REACTIONS (1)
  - CEREBROVASCULAR ACCIDENT [None]
